FAERS Safety Report 24336343 (Version 1)
Quarter: 2024Q3

REPORT INFORMATION
  Report Type: Spontaneous
  Country: KR (occurrence: KR)
  Receive Date: 20240919
  Receipt Date: 20240919
  Transmission Date: 20241016
  Serious: No
  Sender: ROCHE
  Company Number: KR-ROCHE-3555697

PATIENT
  Age: 23 Year
  Sex: Female

DRUGS (1)
  1. TAMIFLU [Suspect]
     Active Substance: OSELTAMIVIR PHOSPHATE
     Indication: Product used for unknown indication
     Route: 065
     Dates: start: 20230411, end: 20230416

REACTIONS (3)
  - Hallucination, auditory [Unknown]
  - Sensory disturbance [Unknown]
  - Urinary incontinence [Unknown]

NARRATIVE: CASE EVENT DATE: 20230411
